FAERS Safety Report 10243069 (Version 1)
Quarter: 2014Q2

REPORT INFORMATION
  Report Type: Spontaneous
  Country: US (occurrence: None)
  Receive Date: 20140613
  Receipt Date: 20140613
  Transmission Date: 20141212
  Serious: Yes (Hospitalization)
  Sender: FDA-Public Use
  Company Number: AUR-APL-2014-06284

PATIENT
  Age: 72 Year
  Sex: Female

DRUGS (2)
  1. METOPROLOL TARTRATE [Suspect]
     Indication: ATRIAL FIBRILLATION
  2. FLECAINIDE (FLECAINIDE) [Suspect]
     Indication: ATRIAL FIBRILLATION

REACTIONS (1)
  - Drug ineffective [None]
